FAERS Safety Report 10698154 (Version 1)
Quarter: 2015Q1

REPORT INFORMATION
  Report Type: Spontaneous
  Country: US (occurrence: None)
  Receive Date: 20150107
  Receipt Date: 20150107
  Transmission Date: 20150721
  Serious: No
  Sender: FDA-Public Use
  Company Number: None

PATIENT
  Age: 68 Year
  Sex: Female

DRUGS (1)
  1. CAPECITABINE 500MG TABLETS TEVA [Suspect]
     Active Substance: CAPECITABINE
     Indication: COLON CANCER
     Dosage: 3 TABLETS BID X 7 DAYS ON /7 ORAL
     Route: 048

REACTIONS (3)
  - Swelling [None]
  - Pain in extremity [None]
  - Peripheral swelling [None]

NARRATIVE: CASE EVENT DATE: 20141223
